FAERS Safety Report 20168860 (Version 2)
Quarter: 2021Q4

REPORT INFORMATION
  Report Type: Spontaneous
  Country: US (occurrence: US)
  Receive Date: 20211210
  Receipt Date: 20211216
  Transmission Date: 20220303
  Serious: Yes (Other)
  Sender: FDA-Public Use
  Company Number: US-AUROBINDO-AUR-APL-2021-050606

PATIENT
  Age: 39 Year
  Sex: Male

DRUGS (8)
  1. METHYLPREDNISOLONE [Suspect]
     Active Substance: METHYLPREDNISOLONE
     Indication: Susac^s syndrome
     Dosage: 1000 MILLIGRAM
     Route: 042
  2. PREDNISONE [Suspect]
     Active Substance: PREDNISONE
     Indication: Susac^s syndrome
     Dosage: 15 MILLIGRAM
     Route: 048
  3. PREDNISONE [Suspect]
     Active Substance: PREDNISONE
     Dosage: 60 MILLIGRAM
     Route: 048
  4. CYCLOPHOSPHAMIDE [Suspect]
     Active Substance: CYCLOPHOSPHAMIDE
     Indication: Susac^s syndrome
     Dosage: UNK
     Route: 065
  5. ASPIRIN [Suspect]
     Active Substance: ASPIRIN
     Indication: Product used for unknown indication
     Dosage: UNK
     Route: 065
  6. HUMAN IMMUNOGLOBULIN G [Suspect]
     Active Substance: HUMAN IMMUNOGLOBULIN G
     Indication: Product used for unknown indication
     Dosage: UNK
     Route: 065
  7. MYCOPHENOLATE MOFETIL [Suspect]
     Active Substance: MYCOPHENOLATE MOFETIL
     Indication: Product used for unknown indication
     Dosage: UNK
     Route: 048
  8. RITUXIMAB [Suspect]
     Active Substance: RITUXIMAB
     Indication: Product used for unknown indication
     Dosage: UNK
     Route: 065

REACTIONS (4)
  - Rebound effect [Recovered/Resolved]
  - Acute macular neuroretinopathy [Unknown]
  - Haematuria [Unknown]
  - Off label use [Unknown]
